FAERS Safety Report 12460578 (Version 1)
Quarter: 2016Q2

REPORT INFORMATION
  Report Type: Spontaneous
  Country: US (occurrence: US)
  Receive Date: 20160613
  Receipt Date: 20160613
  Transmission Date: 20160815
  Serious: No
  Sender: FDA-Public Use
  Company Number: GXBR2016US001665

PATIENT
  Age: 57 Year
  Sex: Female
  Weight: 86.17 kg

DRUGS (4)
  1. GLATOPA [Suspect]
     Active Substance: GLATIRAMER ACETATE
     Indication: MULTIPLE SCLEROSIS
     Dosage: 20 MG, QD
     Route: 065
     Dates: start: 201508
  2. WELLBUTRIN [Concomitant]
     Active Substance: BUPROPION HYDROCHLORIDE
     Indication: ANTIDEPRESSANT THERAPY
     Dosage: 100 MG, BID
     Route: 065
     Dates: start: 1999
  3. DIAZEPAM. [Concomitant]
     Active Substance: DIAZEPAM
     Indication: MUSCLE SPASTICITY
     Dosage: 5 MG QD OR BID PRN, UNK
     Route: 065
     Dates: start: 1999
  4. LOVASTATIN. [Concomitant]
     Active Substance: LOVASTATIN
     Indication: BLOOD CHOLESTEROL ABNORMAL
     Dosage: 10 MG, QD
     Route: 065
     Dates: start: 1998

REACTIONS (14)
  - Headache [Not Recovered/Not Resolved]
  - Feeling hot [Unknown]
  - Sinusitis [Unknown]
  - Palpitations [Unknown]
  - Post procedural cellulitis [Unknown]
  - Malaise [Not Recovered/Not Resolved]
  - Multiple sclerosis [Unknown]
  - Muscle spasticity [Not Recovered/Not Resolved]
  - Central nervous system lesion [Unknown]
  - Energy increased [Unknown]
  - Lipoma [Unknown]
  - Nasopharyngitis [Not Recovered/Not Resolved]
  - Asthenia [Not Recovered/Not Resolved]
  - Dyspepsia [Unknown]

NARRATIVE: CASE EVENT DATE: 201509
